FAERS Safety Report 4876426-9 (Version None)
Quarter: 2006Q1

REPORT INFORMATION
  Report Type: 
  Country: None (occurrence: None)
  Receive Date: 20060106
  Receipt Date: 20051229
  Transmission Date: 20060701
  Serious: Yes (Hospitalization)
  Sender: FDA-Public Use
  Company Number: GXKR2005US02219

PATIENT
  Age: 72 Year
  Sex: Male

DRUGS (9)
  1. METFORMIN HCL [Suspect]
     Indication: DIABETES MELLITUS NON-INSULIN-DEPENDENT
  2. DIGOXIN                   (BETA METHYL DIGOXIN) [Suspect]
  3. CAPTOPRIL [Suspect]
  4. ISOSORBIDE DINITRATE [Suspect]
  5. GLYBURIDE [Suspect]
  6. SALBUTAMOL [Suspect]
  7. PREDNISONE [Suspect]
  8. FUROSEMIDE [Suspect]
  9. IPRATROPIUM BROMIDE [Suspect]

REACTIONS (6)
  - BLOOD CREATININE INCREASED [None]
  - BLOOD GLUCOSE INCREASED [None]
  - HAEMODIALYSIS [None]
  - LACTIC ACIDOSIS [None]
  - PERITONEAL DIALYSIS [None]
  - THERAPEUTIC AGENT TOXICITY [None]
